FAERS Safety Report 21012782 (Version 1)
Quarter: 2022Q2

REPORT INFORMATION
  Report Type: Spontaneous
  Country: US (occurrence: US)
  Receive Date: 20220627
  Receipt Date: 20220627
  Transmission Date: 20220721
  Serious: No
  Sender: FDA-Public Use
  Company Number: US-SA-SAC20220616000173

PATIENT
  Age: 58 Year
  Sex: Male

DRUGS (3)
  1. DUPIXENT [Suspect]
     Active Substance: DUPILUMAB
     Indication: Dermatitis atopic
     Dosage: 300 MG, QOW
     Route: 058
     Dates: start: 20220321
  2. RINVOQ [Suspect]
     Active Substance: UPADACITINIB
  3. OMNICEF [Concomitant]
     Active Substance: CEFDINIR

REACTIONS (4)
  - Productive cough [Unknown]
  - Nasal discomfort [Unknown]
  - Sputum discoloured [Unknown]
  - Insomnia [Unknown]

NARRATIVE: CASE EVENT DATE: 20220501
